FAERS Safety Report 22299904 (Version 5)
Quarter: 2024Q3

REPORT INFORMATION
  Report Type: Report from Study
  Country: US (occurrence: US)
  Receive Date: 20230509
  Receipt Date: 20240725
  Transmission Date: 20241017
  Serious: Yes (Other)
  Sender: ABBVIE
  Company Number: US-ABBVIE-4711924

PATIENT
  Sex: Male

DRUGS (4)
  1. IMBRUVICA [Suspect]
     Active Substance: IBRUTINIB
     Indication: Waldenstrom^s macroglobulinaemia
     Route: 048
  2. IMBRUVICA [Suspect]
     Active Substance: IBRUTINIB
     Indication: Waldenstrom^s macroglobulinaemia
     Route: 048
     Dates: start: 202105
  3. ASPIRIN [Concomitant]
     Active Substance: ASPIRIN
     Indication: Product used for unknown indication
  4. METOPROLOL [Concomitant]
     Active Substance: METOPROLOL
     Indication: Product used for unknown indication

REACTIONS (13)
  - Heart rate decreased [Recovering/Resolving]
  - Hernia [Recovering/Resolving]
  - Supraventricular extrasystoles [Unknown]
  - Pain [Unknown]
  - Dental care [Unknown]
  - Palpitations [Recovered/Resolved]
  - Heart valve incompetence [Recovering/Resolving]
  - Adrenal adenoma [Recovering/Resolving]
  - Red blood cell count decreased [Unknown]
  - Dysphagia [Unknown]
  - White blood cell count decreased [Unknown]
  - Palpitations [Unknown]
  - Heart rate irregular [Unknown]

NARRATIVE: CASE EVENT DATE: 20240101
